FAERS Safety Report 5051576-5 (Version None)
Quarter: 2006Q3

REPORT INFORMATION
  Report Type: 
  Country: None (occurrence: None)
  Receive Date: 20060711
  Receipt Date: 20060629
  Transmission Date: 20061208
  Serious: Yes (Hospitalization)
  Sender: FDA-Public Use
  Company Number: APP200600182

PATIENT
  Age: 33 Year
  Sex: Female

DRUGS (2)
  1. PROGESTERONE INJ [Suspect]
     Indication: ASSISTED FERTILISATION
     Dosage: 50 MG (50 MG, 1 IN 1 D), INTRAMUSCULAR
     Route: 030
  2. ESTRADIOL INJ [Suspect]
     Indication: ASSISTED FERTILISATION
     Dosage: 4 MG, 2 IN 1 WK, INTRAMUSCULAR
     Route: 030

REACTIONS (10)
  - ALVEOLITIS ALLERGIC [None]
  - EOSINOPHILIA [None]
  - INJECTION SITE ERYTHEMA [None]
  - INJECTION SITE PRURITUS [None]
  - LEUKOCYTOSIS [None]
  - PLEURAL EFFUSION [None]
  - REACTION TO DRUG EXCIPIENTS [None]
  - RESPIRATORY ACIDOSIS [None]
  - RESPIRATORY DISTRESS [None]
  - TYPE IV HYPERSENSITIVITY REACTION [None]
